FAERS Safety Report 8354636-6 (Version None)
Quarter: 2012Q2

REPORT INFORMATION
  Report Type: 
  Country: None (occurrence: None)
  Receive Date: 20120511
  Receipt Date: 20120502
  Transmission Date: 20120825
  Serious: Yes (Hospitalization, Other)
  Sender: FDA-Public Use
  Company Number: US-MERCK-1111USA03157

PATIENT
  Age: 69 Year
  Sex: Female
  Weight: 65 kg

DRUGS (5)
  1. ACTONEL [Suspect]
     Route: 065
     Dates: start: 20030101, end: 20100101
  2. FOSAMAX [Suspect]
     Indication: OSTEOPOROSIS
     Route: 048
     Dates: start: 20010501, end: 20060101
  3. BONIVA [Suspect]
     Indication: OSTEOPOROSIS
     Route: 048
     Dates: start: 20080401
  4. FOSAMAX [Suspect]
     Route: 048
     Dates: start: 19951120, end: 20000101
  5. FOSAMAX PLUS D [Suspect]
     Indication: OSTEOPOROSIS
     Route: 048
     Dates: start: 20060801, end: 20080101

REACTIONS (41)
  - FALL [None]
  - FIBROCYSTIC BREAST DISEASE [None]
  - URGE INCONTINENCE [None]
  - HYPERTENSION [None]
  - INTERVERTEBRAL DISC DEGENERATION [None]
  - INFECTION [None]
  - POLLAKIURIA [None]
  - ROSACEA [None]
  - RENAL CYST [None]
  - PROTEINURIA [None]
  - CONTUSION [None]
  - BENIGN BREAST NEOPLASM [None]
  - CAROTID ARTERY STENOSIS [None]
  - ABDOMINAL PAIN [None]
  - VITAMIN D DEFICIENCY [None]
  - SEASONAL ALLERGY [None]
  - BRONCHITIS [None]
  - ANXIETY [None]
  - ARTHRITIS [None]
  - BACK PAIN [None]
  - SYNOVIAL CYST [None]
  - WEIGHT INCREASED [None]
  - FEMUR FRACTURE [None]
  - CERVICAL DYSPLASIA [None]
  - HYPERCHOLESTEROLAEMIA [None]
  - RIB FRACTURE [None]
  - SPINAL OSTEOARTHRITIS [None]
  - BALANCE DISORDER [None]
  - URINARY RETENTION [None]
  - HEPATIC CYST [None]
  - GASTROOESOPHAGEAL REFLUX DISEASE [None]
  - STRESS URINARY INCONTINENCE [None]
  - MICTURITION URGENCY [None]
  - CAROTID ARTERY OCCLUSION [None]
  - HYPERLIPIDAEMIA [None]
  - FRACTURE NONUNION [None]
  - VERTEBRAL FORAMINAL STENOSIS [None]
  - SLEEP DISORDER [None]
  - HERPES ZOSTER [None]
  - INTERVERTEBRAL DISC PROTRUSION [None]
  - COLONIC POLYP [None]
